FAERS Safety Report 15440655 (Version 1)
Quarter: 2018Q3

REPORT INFORMATION
  Report Type: Spontaneous
  Country: US (occurrence: US)
  Receive Date: 20180928
  Receipt Date: 20180928
  Transmission Date: 20181010
  Serious: No
  Sender: FDA-Public Use
  Company Number: US-B.I. PHARMACEUTICALS,INC./RIDGEFIELD-2018-BI-046636

PATIENT
  Sex: Male

DRUGS (1)
  1. COMBIVENT [Suspect]
     Active Substance: ALBUTEROL SULFATE\IPRATROPIUM BROMIDE
     Indication: ASTHMA
     Dosage: STRENGTH:20 MCG / 100 MCG; ADMINISTRATION CORRECT?NR(NOT REPORTED) ACTION(S) PRODUCT: NOT REPORTED
     Route: 065

REACTIONS (2)
  - Off label use [Unknown]
  - Ill-defined disorder [Unknown]
